FAERS Safety Report 6387278-2 (Version None)
Quarter: 2009Q3

REPORT INFORMATION
  Report Type: 
  Country: None (occurrence: None)
  Receive Date: 20090928
  Receipt Date: 20090817
  Transmission Date: 20100115
  Serious: Yes (Congenital Anomaly, Other)
  Sender: FDA-Public Use
  Company Number: SEP-2009-00001

PATIENT
  Sex: Male

DRUGS (1)
  1. ABARELIX (ABARELIX) [Suspect]
     Indication: PROSTATE CANCER
     Dosage: 7.1429 MG, 1 IN 2 WEEKS, INTRAMUSCULAR
     Route: 030

REACTIONS (4)
  - BRADYCARDIA [None]
  - HYPOTENSION [None]
  - UNRESPONSIVE TO STIMULI [None]
  - URTICARIA [None]
